FAERS Safety Report 16710475 (Version 1)
Quarter: 2019Q3

REPORT INFORMATION
  Report Type: Spontaneous
  Country: PR (occurrence: PR)
  Receive Date: 20190816
  Receipt Date: 20190816
  Transmission Date: 20191004
  Serious: No
  Sender: FDA-Public Use
  Company Number: PR-PFIZER INC-2019348176

PATIENT
  Age: 64 Year
  Sex: Female
  Weight: 90.25 kg

DRUGS (1)
  1. IBRANCE [Suspect]
     Active Substance: PALBOCICLIB
     Indication: BREAST CANCER FEMALE
     Dosage: 125 MG, CYCLIC (1 DAILY ON 21 DAILY AND OFF 7 DAYS)
     Route: 048
     Dates: start: 20190801

REACTIONS (5)
  - Fatigue [Unknown]
  - Product dose omission [Unknown]
  - Headache [Unknown]
  - Arthropathy [Unknown]
  - Asthenia [Unknown]

NARRATIVE: CASE EVENT DATE: 20190812
